FAERS Safety Report 5930156-0 (Version None)
Quarter: 2008Q4

REPORT INFORMATION
  Report Type: 
  Country: None (occurrence: None)
  Receive Date: 20081021
  Receipt Date: 20081009
  Transmission Date: 20090506
  Serious: Yes (Hospitalization)
  Sender: FDA-Public Use
  Company Number: 230118K08USA

PATIENT
  Age: 31 Year
  Sex: Female
  Weight: 47 kg

DRUGS (3)
  1. REBIF [Suspect]
     Indication: MULTIPLE SCLEROSIS
     Dosage: 44 MCG, 3 IN 1 WEEKS, SUBCUTANEOUS
     Route: 058
     Dates: start: 20080801
  2. TYENOL (COTYLENOL) [Concomitant]
  3. BIRTH CONTROL PILLS (ORAL CONTRACEPTIVE NOS) [Concomitant]

REACTIONS (4)
  - ANAEMIA [None]
  - CONDITION AGGRAVATED [None]
  - GASTROINTESTINAL HAEMORRHAGE [None]
  - HAEMATOCHEZIA [None]
